FAERS Safety Report 6004661-5 (Version None)
Quarter: 2008Q4

REPORT INFORMATION
  Report Type: 
  Country: None (occurrence: None)
  Receive Date: 20081216
  Receipt Date: 20081210
  Transmission Date: 20090506
  Serious: Yes (Life-Threatening)
  Sender: FDA-Public Use
  Company Number: JP-ABBOTT-08P-087-0492270-00

PATIENT
  Sex: Female

DRUGS (7)
  1. SEVOFLURANE [Suspect]
     Indication: GENERAL ANAESTHESIA
     Route: 055
     Dates: start: 20070906, end: 20070906
  2. FENTANYL CITRATE [Concomitant]
     Indication: GENERAL ANAESTHESIA
     Route: 042
     Dates: start: 20070906, end: 20070906
  3. FENTANYL CITRATE [Concomitant]
     Route: 042
     Dates: start: 20070906, end: 20070906
  4. ETILEFRINE HYDROCHLORIDE [Concomitant]
     Indication: GENERAL ANAESTHESIA
     Route: 042
     Dates: start: 20070906, end: 20070906
  5. REMIFENTANIL HYDROCHLORIDE [Concomitant]
     Indication: GENERAL ANAESTHESIA
     Dosage: 0.2 MG/HR CONTINUANCE
     Route: 042
     Dates: start: 20070906, end: 20070906
  6. THIAMYLAL SODIUM [Concomitant]
     Indication: GENERAL ANAESTHESIA
     Route: 042
     Dates: start: 20070906, end: 20070906
  7. NITROUS OXIDE [Concomitant]
     Indication: DRUG USE FOR UNKNOWN INDICATION
     Dates: start: 20070906, end: 20070906

REACTIONS (5)
  - ANGINA PECTORIS [None]
  - DYSLALIA [None]
  - MYASTHENIA GRAVIS [None]
  - RESPIRATORY DISORDER [None]
  - VOMITING [None]
